FAERS Safety Report 4588995-7 (Version None)
Quarter: 2005Q1

REPORT INFORMATION
  Report Type: 
  Country: None (occurrence: None)
  Receive Date: 20050125
  Receipt Date: 20041011
  Transmission Date: 20050727
  Serious: No
  Sender: FDA-Public Use
  Company Number: USA040670629

PATIENT
  Age: 78 Year
  Sex: Female
  Weight: 52 kg

DRUGS (3)
  1. FORTEO [Suspect]
     Indication: OSTEOPOROSIS
     Dosage: 20 UG DAY
     Dates: start: 20040615
  2. TIAZAC [Concomitant]
  3. VIOXX [Concomitant]

REACTIONS (5)
  - DIARRHOEA [None]
  - FALL [None]
  - MUSCLE SPASMS [None]
  - PRURITUS GENERALISED [None]
  - URTICARIA [None]
